FAERS Safety Report 21312633 (Version 1)
Quarter: 2022Q3

REPORT INFORMATION
  Report Type: Spontaneous
  Country: US (occurrence: US)
  Receive Date: 20220909
  Receipt Date: 20220909
  Transmission Date: 20221027
  Serious: No
  Sender: FDA-Public Use
  Company Number: US-PFIZER INC-202201139071

PATIENT
  Age: 82 Year
  Sex: Female
  Weight: 61.69 kg

DRUGS (1)
  1. PAXLOVID [Suspect]
     Active Substance: NIRMATRELVIR\RITONAVIR
     Indication: COVID-19 treatment
     Dosage: 400 MG, 2X/DAY (300MG NIRMATRELVIR/100MG RITONAVIR IN MORNING AND EVENING)
     Dates: start: 20220907

REACTIONS (3)
  - Dysgeusia [Not Recovered/Not Resolved]
  - Bradykinesia [Unknown]
  - Feeling abnormal [Unknown]

NARRATIVE: CASE EVENT DATE: 20220907
